FAERS Safety Report 7875173-9 (Version None)
Quarter: 2011Q4

REPORT INFORMATION
  Report Type: 
  Country: None (occurrence: None)
  Receive Date: 20111031
  Receipt Date: 20111018
  Transmission Date: 20120403
  Serious: No
  Sender: FDA-Public Use
  Company Number: US-BIOGENIDEC-2011BI040231

PATIENT
  Age: 35 Year
  Sex: Male

DRUGS (1)
  1. AVONEX [Suspect]
     Indication: MULTIPLE SCLEROSIS
     Route: 030
     Dates: start: 20030910

REACTIONS (7)
  - ABASIA [None]
  - GASTROINTESTINAL DISORDER [None]
  - HYPOXIA [None]
  - DYSARTHRIA [None]
  - SELF-INJURIOUS IDEATION [None]
  - VENOUS STENOSIS [None]
  - NEUROPATHY PERIPHERAL [None]
